FAERS Safety Report 14221476 (Version 2)
Quarter: 2017Q4

REPORT INFORMATION
  Report Type: Report from Study
  Country: US (occurrence: US)
  Receive Date: 20171124
  Receipt Date: 20171206
  Transmission Date: 20180321
  Serious: Yes (Hospitalization)
  Sender: FDA-Public Use
  Company Number: US-JNJFOC-20171125368

PATIENT
  Age: 19 Year
  Sex: Female
  Weight: 56.7 kg

DRUGS (2)
  1. ENTYVIO [Concomitant]
     Active Substance: VEDOLIZUMAB
     Route: 065
  2. REMICADE [Suspect]
     Active Substance: INFLIXIMAB
     Indication: INFLAMMATORY BOWEL DISEASE
     Route: 042
     Dates: start: 20120827

REACTIONS (2)
  - Road traffic accident [Recovered/Resolved]
  - Large intestinal haemorrhage [Recovered/Resolved with Sequelae]

NARRATIVE: CASE EVENT DATE: 20170606
